FAERS Safety Report 5105542-1 (Version None)
Quarter: 2006Q3

REPORT INFORMATION
  Report Type: 
  Country: None (occurrence: None)
  Receive Date: 20060731
  Receipt Date: 20060516
  Transmission Date: 20061208
  Serious: Yes (Death)
  Sender: FDA-Public Use
  Company Number: US-JNJFOC-20060503716

PATIENT
  Age: 28 Year
  Sex: Male

DRUGS (5)
  1. RISPERDAL [Suspect]
     Indication: MAJOR DEPRESSION
     Dosage: 2 MG, 1 IN 1 DAY, ORAL
     Route: 048
  2. LEXAPRO () SSRI [Concomitant]
  3. SEROQUEL [Concomitant]
  4. WELBUTRIN (BUPROPION HYDROCHLORIDE) [Concomitant]
  5. LORTAB 10/500 (VICODIN) [Concomitant]

REACTIONS (1)
  - PULMONARY EMBOLISM [None]
